FAERS Safety Report 11420351 (Version 1)
Quarter: 2015Q3

REPORT INFORMATION
  Report Type: Spontaneous
  Country: PT (occurrence: PT)
  Receive Date: 20150826
  Receipt Date: 20150826
  Transmission Date: 20151125
  Serious: Yes (Hospitalization, Other)
  Sender: FDA-Public Use
  Company Number: PT-GILEAD-2015-0164316

PATIENT
  Age: 46 Year
  Sex: Female

DRUGS (3)
  1. TRUVADA [Suspect]
     Active Substance: EMTRICITABINE\TENOFOVIR DISOPROXIL FUMARATE
     Indication: HIV INFECTION
     Dosage: UNK
     Route: 065
     Dates: end: 20131227
  2. AMINOFILIN                         /00003701/ [Concomitant]
     Dosage: UNK
  3. VENLAFAXIN [Concomitant]
     Active Substance: VENLAFAXINE HYDROCHLORIDE
     Dosage: UNK

REACTIONS (4)
  - Metabolic acidosis [Unknown]
  - Renal failure [Unknown]
  - Glycosuria [Unknown]
  - Fanconi syndrome acquired [Recovered/Resolved with Sequelae]

NARRATIVE: CASE EVENT DATE: 20131218
